FAERS Safety Report 9910490 (Version 2)
Quarter: 2014Q1

REPORT INFORMATION
  Report Type: Spontaneous
  Country: US (occurrence: US)
  Receive Date: 20140219
  Receipt Date: 20140219
  Transmission Date: 20141002
  Serious: Yes (Hospitalization)
  Sender: FDA-Public Use
  Company Number: US-GILEAD-2011-0048375

PATIENT
  Sex: Male

DRUGS (4)
  1. LETAIRIS [Suspect]
     Indication: PULMONARY HYPERTENSION
     Dosage: 10 MG, UNK
     Route: 048
     Dates: start: 20100407
  2. LETAIRIS [Suspect]
     Indication: HEART DISEASE CONGENITAL
  3. ADCIRCA [Concomitant]
  4. REMODULIN [Concomitant]

REACTIONS (1)
  - Oedema [Unknown]
